FAERS Safety Report 4695633-1 (Version None)
Quarter: 2005Q2

REPORT INFORMATION
  Report Type: 
  Country: None (occurrence: None)
  Receive Date: 20050621
  Receipt Date: 20050331
  Transmission Date: 20051028
  Serious: Yes (Other)
  Sender: FDA-Public Use
  Company Number: US-JNJFOC-20040302641

PATIENT
  Age: 18 Year
  Sex: Female
  Weight: 61.24 kg

DRUGS (1)
  1. TOPAMAX [Suspect]
     Route: 049

REACTIONS (2)
  - ABORTION SPONTANEOUS [None]
  - DRUG EXPOSURE DURING PREGNANCY [None]
